FAERS Safety Report 6833525-X (Version None)
Quarter: 2010Q3

REPORT INFORMATION
  Report Type: 
  Country: None (occurrence: None)
  Receive Date: 20100712
  Receipt Date: 20070328
  Transmission Date: 20110219
  Serious: No
  Sender: FDA-Public Use
  Company Number: US-PFIZER INC-2007026289

PATIENT
  Sex: Male
  Weight: 117.93 kg

DRUGS (6)
  1. CHANTIX [Suspect]
     Indication: SMOKING CESSATION THERAPY
     Dates: start: 20070301
  2. PROVIGIL [Concomitant]
  3. NEURONTIN [Concomitant]
  4. CITALOPRAM HYDROBROMIDE [Concomitant]
  5. IBUPROFEN [Concomitant]
  6. TYLENOL (CAPLET) [Concomitant]

REACTIONS (1)
  - FATIGUE [None]
